FAERS Safety Report 10035419 (Version 2)
Quarter: 2014Q2

REPORT INFORMATION
  Report Type: Spontaneous
  Country: JO (occurrence: JO)
  Receive Date: 20140325
  Receipt Date: 20140403
  Transmission Date: 20141212
  Serious: Yes (Other)
  Sender: FDA-Public Use
  Company Number: JO-JHP PHARMACEUTICALS, LLC-JHP201400103

PATIENT
  Age: 31 Year
  Sex: Female
  Weight: 83 kg

DRUGS (4)
  1. PITOCIN [Suspect]
     Indication: LABOUR INDUCTION
     Dosage: SEE NARRATIVE
  2. PROPOFOL [Concomitant]
     Indication: ENDOTRACHEAL INTUBATION
     Dosage: UNK
  3. ROCURONIUM BROMIDE [Concomitant]
     Indication: ENDOTRACHEAL INTUBATION
     Dosage: 1 MG/KG, UNK
     Route: 042
  4. MAGNESIUM SULFATE [Concomitant]
     Indication: ECLAMPSIA

REACTIONS (3)
  - Hyponatraemic seizure [Recovered/Resolved]
  - Jaw fracture [Recovered/Resolved]
  - Maternal exposure during delivery [Recovered/Resolved]
